FAERS Safety Report 20884692 (Version 1)
Quarter: 2022Q2

REPORT INFORMATION
  Report Type: Spontaneous
  Country: US (occurrence: US)
  Receive Date: 20220527
  Receipt Date: 20220527
  Transmission Date: 20220720
  Serious: Yes (Hospitalization, Other)
  Sender: FDA-Public Use
  Company Number: US-PFIZER INC-202200755176

PATIENT
  Age: 79 Year
  Sex: Female
  Weight: 65.77 kg

DRUGS (2)
  1. PANTOPRAZOLE [Suspect]
     Active Substance: PANTOPRAZOLE
     Indication: Oesophageal ulcer
     Dosage: 40 MG, 1X/DAY, (40 MG IN THE MORNING)
  2. PROTONIX [Suspect]
     Active Substance: PANTOPRAZOLE SODIUM
     Indication: Oesophageal ulcer
     Dosage: 40 MG, 1X/DAY, (40 MG IN THE MORNING)

REACTIONS (7)
  - Gastrointestinal haemorrhage [Unknown]
  - COVID-19 [Unknown]
  - Clostridium difficile infection [Unknown]
  - Eye haemorrhage [Unknown]
  - Malabsorption [Unknown]
  - Cough [Unknown]
  - Hypotension [Unknown]

NARRATIVE: CASE EVENT DATE: 20220222
